FAERS Safety Report 10041079 (Version 5)
Quarter: 2015Q3

REPORT INFORMATION
  Report Type: Spontaneous
  Country: PR (occurrence: PR)
  Receive Date: 20140327
  Receipt Date: 20150928
  Transmission Date: 20151125
  Serious: Yes (Hospitalization)
  Sender: FDA-Public Use
  Company Number: US-PFIZER INC-2014086389

PATIENT
  Age: 73 Year
  Sex: Female

DRUGS (12)
  1. NORVASC [Concomitant]
     Active Substance: AMLODIPINE BESYLATE
     Dosage: 10 MG, UNK
     Dates: start: 2013
  2. SIMVASTATIN. [Concomitant]
     Active Substance: SIMVASTATIN
     Dosage: UNK
     Dates: start: 2000
  3. PLAVIX [Concomitant]
     Active Substance: CLOPIDOGREL BISULFATE
     Dosage: 75 MG, UNK
     Dates: start: 2013
  4. LISINOPRIL. [Concomitant]
     Active Substance: LISINOPRIL
     Dosage: 20 MG, UNK
     Dates: start: 2000
  5. METOPROLOL [Concomitant]
     Active Substance: METOPROLOL
     Dosage: UNK
     Dates: start: 2008
  6. LYRICA [Suspect]
     Active Substance: PREGABALIN
     Indication: NEUROPATHY PERIPHERAL
  7. FOLIC ACID. [Concomitant]
     Active Substance: FOLIC ACID
     Dosage: 1 MG, UNK
     Dates: start: 2010
  8. SINGULAIR [Concomitant]
     Active Substance: MONTELUKAST SODIUM
     Dosage: 10 MG, UNK
     Dates: start: 2000
  9. XANAX [Concomitant]
     Active Substance: ALPRAZOLAM
     Dosage: UNK
     Dates: start: 2000
  10. LYRICA [Suspect]
     Active Substance: PREGABALIN
     Indication: FIBROMYALGIA
     Dosage: 100 MG, 2X/DAY
     Dates: start: 2012
  11. PANTOPRAZOLE [Concomitant]
     Active Substance: PANTOPRAZOLE SODIUM
     Dosage: UNK
  12. ADVAIR DISC [Concomitant]
     Dosage: UNK
     Dates: start: 2008

REACTIONS (5)
  - Bedridden [Unknown]
  - Movement disorder [Unknown]
  - Transient ischaemic attack [Unknown]
  - Blood pressure abnormal [Unknown]
  - Pain [Unknown]
